FAERS Safety Report 12648875 (Version 2)
Quarter: 2016Q3

REPORT INFORMATION
  Report Type: Spontaneous
  Country: US (occurrence: US)
  Receive Date: 20160812
  Receipt Date: 20160907
  Transmission Date: 20161109
  Serious: No
  Sender: FDA-Public Use
  Company Number: US-PFIZER INC-2016383404

PATIENT
  Age: 75 Year
  Sex: Female
  Weight: 58.51 kg

DRUGS (1)
  1. IBRANCE [Suspect]
     Active Substance: PALBOCICLIB
     Indication: BREAST CANCER
     Dosage: 100 MG, UNK(100 MG CAPSULE ONCE)
     Route: 048
     Dates: end: 20160805

REACTIONS (1)
  - Skin burning sensation [Recovering/Resolving]
